FAERS Safety Report 23742383 (Version 1)
Quarter: 2024Q2

REPORT INFORMATION
  Report Type: Spontaneous
  Country: US (occurrence: US)
  Receive Date: 20240415
  Receipt Date: 20240415
  Transmission Date: 20240716
  Serious: Yes (Life-Threatening, Other)
  Sender: FDA-Public Use
  Company Number: US-INCYTE CORPORATION-2024IN003805

PATIENT

DRUGS (2)
  1. JAKAFI [Suspect]
     Active Substance: RUXOLITINIB
     Indication: Essential thrombocythaemia
     Dosage: 10 MILLIGRAM, QD
     Route: 048
  2. HYDROXYUREA [Concomitant]
     Active Substance: HYDROXYUREA
     Route: 065

REACTIONS (3)
  - Ill-defined disorder [Unknown]
  - Malignant melanoma [Unknown]
  - Off label use [Unknown]
